FAERS Safety Report 6886413-7 (Version None)
Quarter: 2010Q3

REPORT INFORMATION
  Report Type: 
  Country: None (occurrence: None)
  Receive Date: 20100729
  Receipt Date: 20081203
  Transmission Date: 20110219
  Serious: No
  Sender: FDA-Public Use
  Company Number: US-PFIZER INC-2008150746

PATIENT
  Age: 74 Year
  Sex: Female

DRUGS (2)
  1. CELEBREX [Suspect]
     Indication: ARTHRITIS
     Dosage: UNK
     Route: 048
  2. EXTRA STRENGTH TYLENOL [Suspect]
     Indication: ARTHRITIS
     Dosage: 1000 MG, 4X/DAY
     Route: 048
     Dates: start: 20081106

REACTIONS (2)
  - DIZZINESS [None]
  - HEADACHE [None]
